FAERS Safety Report 4524146-2 (Version None)
Quarter: 2004Q4

REPORT INFORMATION
  Report Type: 
  Country: None (occurrence: None)
  Receive Date: 20041119
  Receipt Date: 20040802
  Transmission Date: 20050328
  Serious: No
  Sender: FDA-Public Use
  Company Number: PHEH2004US08274

PATIENT
  Age: 51 Year
  Sex: Female

DRUGS (1)
  1. ZELNORM [Suspect]
     Indication: IMPAIRED GASTRIC EMPTYING
     Dosage: 6 MG, BID, ORAL;  6 MG, QD
     Route: 048
     Dates: start: 20030101

REACTIONS (3)
  - ABDOMINAL PAIN [None]
  - FAECES PALE [None]
  - FREQUENT BOWEL MOVEMENTS [None]
